FAERS Safety Report 9775771 (Version 3)
Quarter: 2014Q1

REPORT INFORMATION
  Report Type: Spontaneous
  Country: US (occurrence: US)
  Receive Date: 20131220
  Receipt Date: 20140317
  Transmission Date: 20141002
  Serious: Yes (Other)
  Sender: FDA-Public Use
  Company Number: US-JNJFOC-20131210507

PATIENT
  Sex: Male
  Weight: 86.18 kg

DRUGS (3)
  1. ULTRAM [Suspect]
     Indication: BREAKTHROUGH PAIN
     Dosage: 50MG TWO TABLETS EVERY FOUR OR SIX HOURS
     Route: 048
     Dates: end: 2013
  2. TRAZODONE [Concomitant]
     Indication: SLEEP DISORDER
     Dosage: TWO 100MG TABLETS AT NIGHT
     Route: 048
     Dates: start: 2009
  3. FENTANYL [Concomitant]
     Indication: NEUROPATHY PERIPHERAL
     Route: 062

REACTIONS (3)
  - Carpal tunnel syndrome [Not Recovered/Not Resolved]
  - Vision blurred [Unknown]
  - Feeling abnormal [Unknown]
